FAERS Safety Report 15440056 (Version 2)
Quarter: 2018Q4

REPORT INFORMATION
  Report Type: Spontaneous
  Country: US (occurrence: US)
  Receive Date: 20180928
  Receipt Date: 20181029
  Transmission Date: 20190204
  Serious: No
  Sender: FDA-Public Use
  Company Number: US-TEVA-2018-US-958057

PATIENT
  Sex: Female

DRUGS (1)
  1. TESTOGEL-A [Suspect]
     Active Substance: TESTOSTERONE
     Dates: start: 20180921, end: 20180921

REACTIONS (2)
  - Malaise [Recovered/Resolved]
  - Product odour abnormal [Unknown]

NARRATIVE: CASE EVENT DATE: 20180921
